FAERS Safety Report 18651041 (Version 1)
Quarter: 2020Q4

REPORT INFORMATION
  Report Type: Report from Study
  Country: None (occurrence: NL)
  Receive Date: 20201223
  Receipt Date: 20201223
  Transmission Date: 20210114
  Serious: Yes (Death, Hospitalization)
  Sender: FDA-Public Use
  Company Number: NL-ABBVIE-16K-114-1819380-00

PATIENT
  Age: 76 Year
  Sex: Female
  Weight: 43 kg

DRUGS (9)
  1. MICONAZOL [Concomitant]
     Active Substance: MICONAZOLE NITRATE
     Indication: FUNGAL INFECTION
  2. OXAZEPAM. [Concomitant]
     Active Substance: OXAZEPAM
     Indication: PRODUCT USED FOR UNKNOWN INDICATION
  3. DUODOPA [Suspect]
     Active Substance: CARBIDOPA\LEVODOPA
     Indication: PARKINSON^S DISEASE
     Dosage: MD 12.5, ED 2.5, CD 4.7, CND 3.3, END 1.0 ED: 5
     Route: 050
     Dates: start: 20140131
  4. NEUPRO [Concomitant]
     Active Substance: ROTIGOTINE
     Indication: PRODUCT USED FOR UNKNOWN INDICATION
  5. DUODOPA [Suspect]
     Active Substance: CARBIDOPA\LEVODOPA
     Dosage: MD: 12.5, CD: 4.7, ED: 5,
     Route: 050
  6. DUODOPA [Suspect]
     Active Substance: CARBIDOPA\LEVODOPA
     Dosage: CDD 2.1
     Route: 050
  7. DUODOPA [Suspect]
     Active Substance: CARBIDOPA\LEVODOPA
     Dosage: CD 2.4ML; ND 1.9ML
     Route: 050
  8. DUODOPA [Suspect]
     Active Substance: CARBIDOPA\LEVODOPA
     Dosage: DAY PUMP: MD 2.4 CD 2.5 ED 2.5?NIGHT PUMP: CD 1.9 ED 1.0
     Route: 050
  9. DUODOPA [Suspect]
     Active Substance: CARBIDOPA\LEVODOPA
     Dosage: MD: 8.5ML, CD: 2.4ML/H, ED: 2.5ML, CND: 1.9ML/H, END: 1.0ML?24 HOUR ADMINISTRATION
     Route: 050

REACTIONS (63)
  - Fibroma [Recovered/Resolved]
  - Loss of personal independence in daily activities [Not Recovered/Not Resolved]
  - Amnesia [Not Recovered/Not Resolved]
  - Dyschezia [Not Recovered/Not Resolved]
  - Confusional state [Not Recovered/Not Resolved]
  - Parkinson^s disease [Not Recovered/Not Resolved]
  - Impaired quality of life [Unknown]
  - Fluid intake reduced [Unknown]
  - Faeces hard [Unknown]
  - Hypophagia [Not Recovered/Not Resolved]
  - Stoma site irritation [Recovered/Resolved]
  - Speech disorder [Not Recovered/Not Resolved]
  - Infrequent bowel movements [Not Recovered/Not Resolved]
  - Tremor [Recovered/Resolved]
  - Dyskinesia [Not Recovered/Not Resolved]
  - On and off phenomenon [Recovering/Resolving]
  - Bradyphrenia [Not Recovered/Not Resolved]
  - Abnormal faeces [Not Recovered/Not Resolved]
  - Dyspnoea [Not Recovered/Not Resolved]
  - Tremor [Not Recovered/Not Resolved]
  - Oedema peripheral [Not Recovered/Not Resolved]
  - Drug ineffective [Not Recovered/Not Resolved]
  - Hyperkinesia [Recovered/Resolved]
  - Stoma site inflammation [Recovered/Resolved]
  - Stoma site reaction [Unknown]
  - Anxiety [Recovering/Resolving]
  - Musculoskeletal stiffness [Not Recovered/Not Resolved]
  - Mental disorder [Not Recovered/Not Resolved]
  - Nervousness [Not Recovered/Not Resolved]
  - Fear [Recovering/Resolving]
  - Decreased appetite [Not Recovered/Not Resolved]
  - Abnormal loss of weight [Not Recovered/Not Resolved]
  - Stoma site erythema [Not Recovered/Not Resolved]
  - Death [Fatal]
  - Lethargy [Not Recovered/Not Resolved]
  - Malnutrition [Not Recovered/Not Resolved]
  - Tremor [Recovered/Resolved]
  - Hallucination [Recovered/Resolved]
  - Dyskinesia [Recovered/Resolved]
  - Hallucination [Recovering/Resolving]
  - Dyskinesia [Unknown]
  - Inappropriate schedule of product administration [Recovered/Resolved]
  - Gait inability [Not Recovered/Not Resolved]
  - Pain in extremity [Recovered/Resolved]
  - Family stress [Not Recovered/Not Resolved]
  - Cognitive disorder [Unknown]
  - Abnormal dreams [Not Recovered/Not Resolved]
  - Depressed mood [Not Recovered/Not Resolved]
  - Muscle rigidity [Recovering/Resolving]
  - Initial insomnia [Not Recovered/Not Resolved]
  - Stoma site discharge [Not Recovered/Not Resolved]
  - Hyperkinesia [Not Recovered/Not Resolved]
  - Stoma site odour [Not Recovered/Not Resolved]
  - Loss of personal independence in daily activities [Unknown]
  - Unevaluable event [Not Recovered/Not Resolved]
  - Crying [Not Recovered/Not Resolved]
  - Fungal infection [Unknown]
  - Pain in extremity [Not Recovered/Not Resolved]
  - Emotional disorder [Not Recovered/Not Resolved]
  - Wheelchair user [Not Recovered/Not Resolved]
  - Weight decreased [Not Recovered/Not Resolved]
  - Therapeutic product effect incomplete [Not Recovered/Not Resolved]
  - Bradykinesia [Not Recovered/Not Resolved]

NARRATIVE: CASE EVENT DATE: 20170312
